FAERS Safety Report 16596660 (Version 1)
Quarter: 2019Q3

REPORT INFORMATION
  Report Type: Spontaneous
  Country: US (occurrence: US)
  Receive Date: 20190718
  Receipt Date: 20190718
  Transmission Date: 20191004
  Serious: Yes (Hospitalization)
  Sender: FDA-Public Use
  Company Number: None

PATIENT
  Age: 58 Year
  Sex: Male

DRUGS (3)
  1. ENBREL [Suspect]
     Active Substance: ETANERCEPT
     Indication: RHEUMATOID ARTHRITIS
     Dosage: ?          OTHER FREQUENCY:WEEKLY;?
     Route: 058
     Dates: start: 20171026
  2. PREDNISONE. [Concomitant]
     Active Substance: PREDNISONE
     Dates: start: 20140109
  3. CELEBREX [Concomitant]
     Active Substance: CELECOXIB
     Dates: start: 20140109

REACTIONS (1)
  - Surgery [None]

NARRATIVE: CASE EVENT DATE: 20190703
